FAERS Safety Report 8870441 (Version 1)
Quarter: 2012Q4

REPORT INFORMATION
  Report Type: Spontaneous
  Country: US (occurrence: None)
  Receive Date: 20121026
  Receipt Date: 20121026
  Transmission Date: 20130627
  Serious: Yes (Other)
  Sender: FDA-Public Use
  Company Number: None

PATIENT
  Age: 52 Year
  Sex: Female

DRUGS (1)
  1. XELODA [Suspect]
     Indication: MALIGNANT BREAST NEOPLASM
     Route: 048
     Dates: start: 20120825, end: 20120907

REACTIONS (1)
  - Thrombosis [None]
